FAERS Safety Report 7445599-6 (Version None)
Quarter: 2011Q2

REPORT INFORMATION
  Report Type: 
  Country: None (occurrence: None)
  Receive Date: 20110429
  Receipt Date: 20110425
  Transmission Date: 20111010
  Serious: Yes (Hospitalization, Other)
  Sender: FDA-Public Use
  Company Number: US-AMGEN-USASP2011021860

PATIENT
  Sex: Female

DRUGS (5)
  1. XELODA [Concomitant]
  2. NEUPOGEN [Suspect]
     Indication: CHEMOTHERAPY
     Dosage: UNK
     Dates: start: 19960101
  3. NEULASTA [Suspect]
     Indication: CHEMOTHERAPY
     Dosage: UNK
     Dates: start: 20110201
  4. ANTINEOPLASTIC AGENTS [Concomitant]
     Dosage: UNK
     Dates: start: 20110131
  5. NAVELBINE [Concomitant]

REACTIONS (15)
  - VISION BLURRED [None]
  - DIZZINESS POSTURAL [None]
  - ADVERSE DRUG REACTION [None]
  - HEMIPARESIS [None]
  - FALL [None]
  - PAIN [None]
  - VIRAL INFECTION [None]
  - PAIN IN EXTREMITY [None]
  - HYPERVENTILATION [None]
  - ARTHRALGIA [None]
  - NEOPLASM MALIGNANT [None]
  - KIDNEY INFECTION [None]
  - MUSCLE SPASMS [None]
  - MYALGIA [None]
  - WHITE BLOOD CELL COUNT DECREASED [None]
